FAERS Safety Report 7344559-3 (Version None)
Quarter: 2011Q1

REPORT INFORMATION
  Report Type: 
  Country: None (occurrence: None)
  Receive Date: 20110307
  Receipt Date: 20110307
  Transmission Date: 20110831
  Serious: Yes (Life-Threatening, Hospitalization, Disabling, Other)
  Sender: FDA-Public Use
  Company Number: None

PATIENT
  Age: 27 Year
  Sex: Female
  Weight: 95.2554 kg

DRUGS (1)
  1. MIRENA [Suspect]
     Indication: CONTRACEPTION
     Dates: start: 20091101, end: 20110301

REACTIONS (10)
  - STRESS [None]
  - APPENDICITIS [None]
  - ANXIETY [None]
  - POSTPARTUM DEPRESSION [None]
  - PALPITATIONS [None]
  - SOCIAL AVOIDANT BEHAVIOUR [None]
  - HEADACHE [None]
  - IRRITABILITY [None]
  - EXTRASYSTOLES [None]
  - FATIGUE [None]
